FAERS Safety Report 6192672-9 (Version None)
Quarter: 2009Q2

REPORT INFORMATION
  Report Type: 
  Country: None (occurrence: None)
  Receive Date: 20090518
  Receipt Date: 20090511
  Transmission Date: 20091009
  Serious: Yes (Other)
  Sender: FDA-Public Use
  Company Number: US-ROCHE-620902

PATIENT
  Age: 63 Year
  Sex: Female

DRUGS (11)
  1. CYTOVENE IV [Suspect]
     Indication: CYTOMEGALOVIRUS ENTERITIS
     Dosage: FREQUENCY: Q12
     Route: 042
     Dates: start: 20090122, end: 20090205
  2. NEXIUM [Concomitant]
     Route: 048
     Dates: start: 20090122
  3. HEPARIN [Concomitant]
     Dosage: STRENGTH AND DOSE: 5000 UNIT
     Route: 058
     Dates: start: 20090122
  4. CLARITIN [Concomitant]
     Dates: start: 20090207
  5. PSEUDOVENT PED [Concomitant]
     Route: 048
     Dates: start: 20090208
  6. MULTIVITAMIN/ZINC [Concomitant]
     Indication: NUTRITIONAL SUPPORT
     Dosage: DOSE: 220/256
     Route: 048
     Dates: start: 20090124
  7. TYLENOL [Concomitant]
     Dates: start: 20090122
  8. IMODIUM [Concomitant]
     Dates: start: 20090126
  9. ZOFRAN [Concomitant]
     Dates: start: 20090122
  10. VICODIN [Concomitant]
     Dates: start: 20090303
  11. AMBIEN [Concomitant]
     Dates: start: 20090122

REACTIONS (2)
  - HEPATOTOXICITY [None]
  - LIVER FUNCTION TEST ABNORMAL [None]
